FAERS Safety Report 7351175-6 (Version None)
Quarter: 2011Q1

REPORT INFORMATION
  Report Type: 
  Country: None (occurrence: None)
  Receive Date: 20110314
  Receipt Date: 20101028
  Transmission Date: 20110831
  Serious: No
  Sender: FDA-Public Use
  Company Number: US-BAYER-201023384BCC

PATIENT
  Sex: Male
  Weight: 113.38 kg

DRUGS (1)
  1. ALEVE [Suspect]
     Indication: MYALGIA
     Dosage: COUNT BOTTLE 100S
     Route: 048
     Dates: start: 20101026

REACTIONS (1)
  - DRY MOUTH [None]
